FAERS Safety Report 8349563-4 (Version None)
Quarter: 2012Q2

REPORT INFORMATION
  Report Type: 
  Country: None (occurrence: None)
  Receive Date: 20120510
  Receipt Date: 20120502
  Transmission Date: 20120825
  Serious: Yes (Hospitalization)
  Sender: FDA-Public Use
  Company Number: US-BAYER-2011-072200

PATIENT
  Age: 24 Year
  Sex: Female
  Weight: 95.238 kg

DRUGS (12)
  1. IMITREX [Concomitant]
     Indication: MIGRAINE
     Dosage: AS NEEDED
     Route: 048
  2. IBUPROFEN [Concomitant]
  3. MERIDIA [Concomitant]
     Indication: WEIGHT DECREASED
     Dosage: 10 MG, DAILY
  4. BUPROPION HYDROCHLORIDE [Concomitant]
     Dosage: 300 MG, UNK
  5. YAZ [Suspect]
     Indication: ACNE
     Dosage: UNK
     Route: 048
     Dates: start: 20090601, end: 20090701
  6. YAZ [Suspect]
     Indication: PREMENSTRUAL SYNDROME
  7. PROZAC [Concomitant]
     Dosage: 40 MG,DAILY
     Route: 048
  8. YAZ [Suspect]
     Indication: MENORRHAGIA
  9. LORATADINE [Concomitant]
     Dosage: 10 MG,DAILY
     Route: 048
  10. WELLBUTRIN [Concomitant]
     Dosage: 300 MG,DAILY
     Route: 048
  11. FLUOXETINE [Concomitant]
     Dosage: 20 MG, UNK
  12. METHADONE HCL [Concomitant]
     Dosage: 44 MG,MORNINGS
     Route: 048
     Dates: start: 20080701, end: 20090901

REACTIONS (6)
  - EMOTIONAL DISTRESS [None]
  - FEAR OF DISEASE [None]
  - PAIN [None]
  - PULMONARY EMBOLISM [None]
  - ANXIETY [None]
  - PSYCHOLOGICAL TRAUMA [None]
